FAERS Safety Report 4287834-1 (Version None)
Quarter: 2004Q1

REPORT INFORMATION
  Report Type: 
  Country: None (occurrence: None)
  Receive Date: 20040205
  Receipt Date: 20040116
  Transmission Date: 20041129
  Serious: Yes (Congenital Anomaly)
  Sender: FDA-Public Use
  Company Number: USA040156904

PATIENT

DRUGS (1)
  1. ZYPREXA [Suspect]

REACTIONS (2)
  - CLEFT LIP [None]
  - MATERNAL DRUGS AFFECTING FOETUS [None]
